FAERS Safety Report 6669272-7 (Version None)
Quarter: 2010Q2

REPORT INFORMATION
  Report Type: 
  Country: None (occurrence: None)
  Receive Date: 20100402
  Receipt Date: 20100322
  Transmission Date: 20101027
  Serious: Yes (Hospitalization)
  Sender: FDA-Public Use
  Company Number: 232985J10USA

PATIENT
  Age: 49 Year
  Sex: Male

DRUGS (8)
  1. REBIF [Suspect]
     Indication: MULTIPLE SCLEROSIS
     Dosage: 44 MCG, E IN 1 WEEKS, SUBCUTANEOUS
     Route: 058
     Dates: start: 20100119
  2. COUMADIN [Suspect]
     Indication: BLUE TOE SYNDROME
     Dates: start: 20030101, end: 20100101
  3. COUMADIN [Suspect]
     Indication: POOR PERIPHERAL CIRCULATION
     Dates: start: 20030101, end: 20100101
  4. COUMADIN [Suspect]
     Indication: BLUE TOE SYNDROME
     Dates: start: 20100101
  5. COUMADIN [Suspect]
     Indication: POOR PERIPHERAL CIRCULATION
     Dates: start: 20100101
  6. UNSPECIFIED MEDICATION (ALL OTHER THERAPEUTIC PRODUCTS) [Concomitant]
  7. UNSPECIFIED MEDICATION (ALL OTHER THERAPEUTIC PRODUCTS) [Concomitant]
  8. INSULIN (INSULIN) [Concomitant]

REACTIONS (3)
  - ASTHENIA [None]
  - HYPOCOAGULABLE STATE [None]
  - INTERNATIONAL NORMALISED RATIO INCREASED [None]
